FAERS Safety Report 12411876 (Version 2)
Quarter: 2016Q2

REPORT INFORMATION
  Report Type: Spontaneous
  Country: FR (occurrence: FR)
  Receive Date: 20160527
  Receipt Date: 20160531
  Transmission Date: 20160815
  Serious: Yes (Hospitalization)
  Sender: FDA-Public Use
  Company Number: FR-JNJFOC-20160518726

PATIENT
  Age: 71 Year
  Sex: Male

DRUGS (16)
  1. THERALENE [Concomitant]
     Active Substance: TRIMEPRAZINE
     Route: 065
  2. KARDEGIC [Concomitant]
     Active Substance: ASPIRIN LYSINE
     Route: 065
  3. SERESTA [Concomitant]
     Active Substance: OXAZEPAM
     Route: 065
  4. TRINITRINE [Concomitant]
     Active Substance: NITROGLYCERIN
     Route: 065
  5. INNOHEP [Concomitant]
     Active Substance: TINZAPARIN SODIUM
     Route: 065
  6. BISOCE [Concomitant]
     Active Substance: BISOPROLOL
     Dosage: 2.5
     Route: 065
  7. REPAGLINIDE. [Concomitant]
     Active Substance: REPAGLINIDE
     Route: 065
  8. DOXORUBICIN HYDROCHLORIDE. [Suspect]
     Active Substance: DOXORUBICIN HYDROCHLORIDE
     Indication: METASTASES TO LUNG
     Dosage: 6 CURES
     Route: 065
     Dates: start: 201401
  9. YONDELIS [Suspect]
     Active Substance: TRABECTEDIN
     Indication: NEOPLASM MALIGNANT
     Dosage: 5 CURES
     Route: 065
     Dates: start: 201508
  10. REPAGLINIDE. [Concomitant]
     Active Substance: REPAGLINIDE
     Dosage: 2 MG X2/D AND 1 MG IN THE EVENING
     Route: 065
  11. AMIODARONE [Concomitant]
     Active Substance: AMIODARONE
     Dosage: 5D/7
     Route: 065
  12. PARACETAMOL [Concomitant]
     Active Substance: ACETAMINOPHEN
     Route: 065
  13. STAGID [Concomitant]
     Active Substance: METFORMIN PAMOATE
     Route: 065
  14. DOXORUBICIN HYDROCHLORIDE. [Suspect]
     Active Substance: DOXORUBICIN HYDROCHLORIDE
     Indication: NEOPLASM MALIGNANT
     Dosage: 6 CURES
     Route: 065
     Dates: start: 201401
  15. ESOMEPRAZOLE [Concomitant]
     Active Substance: ESOMEPRAZOLE
     Route: 065
  16. DIFFU K [Concomitant]
     Active Substance: POTASSIUM CHLORIDE
     Route: 065

REACTIONS (10)
  - Septic shock [None]
  - Metastases to lung [None]
  - Haemorrhage [None]
  - Malignant neoplasm progression [None]
  - Cholecystitis infective [None]
  - Cardiomyopathy [None]
  - Pulmonary oedema [None]
  - Systolic dysfunction [Recovering/Resolving]
  - Generalised oedema [Recovering/Resolving]
  - Atrial fibrillation [None]

NARRATIVE: CASE EVENT DATE: 201604
